FAERS Safety Report 18841126 (Version 1)
Quarter: 2021Q1

REPORT INFORMATION
  Report Type: Spontaneous
  Country: DE (occurrence: DE)
  Receive Date: 20210203
  Receipt Date: 20210203
  Transmission Date: 20210419
  Serious: Yes (Other)
  Sender: FDA-Public Use
  Company Number: DE-ANIPHARMA-2021-DE-000017

PATIENT
  Age: 62 Year
  Sex: Male

DRUGS (6)
  1. PROCORALAN [Suspect]
     Active Substance: IVABRADINE
     Dosage: 7.5 MG 2 X 1
     Route: 065
  2. ENTRESTO [Concomitant]
     Active Substance: SACUBITRIL\VALSARTAN
     Dosage: UP TO MAX 97/103 MG 2 X 1 /  REDUCED TO 49/51 MG 2X 1
     Route: 065
     Dates: start: 2016
  3. INSPRA [Concomitant]
     Active Substance: EPLERENONE
     Dosage: 25 1 X 1
     Route: 065
     Dates: start: 2010
  4. HYDROCHLOROTHIAZIDE. [Concomitant]
     Active Substance: HYDROCHLOROTHIAZIDE
     Dosage: 25 X1
     Route: 065
     Dates: start: 2010
  5. ATACAND [Suspect]
     Active Substance: CANDESARTAN CILEXETIL
     Indication: CORONARY ARTERY DISEASE
     Dosage: 8 MG DAILY
     Route: 048
     Dates: start: 2010
  6. BISOPROLOL [Concomitant]
     Active Substance: BISOPROLOL
     Dosage: 2.5 X 1/ REDUCED
     Route: 065
     Dates: start: 2010

REACTIONS (2)
  - Cardiac failure [Unknown]
  - Pleural effusion [Unknown]

NARRATIVE: CASE EVENT DATE: 2018
